FAERS Safety Report 9206945 (Version 1)
Quarter: 2013Q2

REPORT INFORMATION
  Report Type: Spontaneous
  Country: US (occurrence: US)
  Receive Date: 20130403
  Receipt Date: 20130403
  Transmission Date: 20140414
  Serious: Yes (Other)
  Sender: FDA-Public Use
  Company Number: US-PFIZER INC-2013104391

PATIENT
  Sex: Male

DRUGS (2)
  1. QUINAPRIL HCL [Suspect]
     Dosage: UNK
  2. HYDROCODONE [Suspect]
     Indication: FRACTURE PAIN
     Dosage: UNK
     Dates: start: 201303, end: 2013

REACTIONS (3)
  - Forearm fracture [Unknown]
  - Fracture pain [Unknown]
  - Drug ineffective [Unknown]
